FAERS Safety Report 5260854-6 (Version None)
Quarter: 2007Q1

REPORT INFORMATION
  Report Type: 
  Country: None (occurrence: None)
  Receive Date: 20070306
  Receipt Date: 20070227
  Transmission Date: 20070707
  Serious: Yes (Life-Threatening)
  Sender: FDA-Public Use
  Company Number: 2007-00510

PATIENT
  Age: 61 Year
  Sex: Female

DRUGS (13)
  1. VELCADE [Suspect]
     Indication: MULTIPLE MYELOMA
     Dosage: 1.80 MG
     Dates: start: 20061211, end: 20070108
  2. DEXAMETHASONE [Concomitant]
  3. BAKTAR (SULFAMETHOXAZOLE, TRIMETHOPRIM) [Concomitant]
  4. DIFLUCAN [Concomitant]
  5. ALENDRONATE SODIUM [Concomitant]
  6. ALLOPURINOL [Concomitant]
  7. SELBEX (TEPRENONE) [Concomitant]
  8. NIZATIDINE [Concomitant]
  9. MAGNESIUM OXIDE [Concomitant]
  10. ZOMETA [Concomitant]
  11. LASIX [Concomitant]
  12. PENTAZOCINE LACTATE [Concomitant]
  13. PREDNISOLONE [Concomitant]

REACTIONS (3)
  - ACTIVITIES OF DAILY LIVING IMPAIRED [None]
  - DEEP VEIN THROMBOSIS [None]
  - PULMONARY INFARCTION [None]
